FAERS Safety Report 8519032-7 (Version None)
Quarter: 2012Q3

REPORT INFORMATION
  Report Type: 
  Country: None (occurrence: None)
  Receive Date: 20120718
  Receipt Date: 20120713
  Transmission Date: 20120928
  Serious: Yes (Other)
  Sender: FDA-Public Use
  Company Number: PHHY2012DE060473

PATIENT
  Age: 13 Year
  Sex: Male

DRUGS (4)
  1. METHOTREXATE [Suspect]
     Dosage: 12 G/M2 OVER 4 HOURS
  2. DOXORUBICIN HCL [Concomitant]
  3. LEUCOVORIN CALCIUM [Concomitant]
     Dosage: 12X15 MG/M2, Q6H
  4. CISPLATIN [Concomitant]

REACTIONS (6)
  - PAIN [None]
  - BLISTER [None]
  - STOMATITIS [None]
  - RASH [None]
  - PALMAR-PLANTAR ERYTHRODYSAESTHESIA SYNDROME [None]
  - SKIN EXFOLIATION [None]
